FAERS Safety Report 17098684 (Version 4)
Quarter: 2020Q1

REPORT INFORMATION
  Report Type: Spontaneous
  Country: US (occurrence: US)
  Receive Date: 20191202
  Receipt Date: 20200121
  Transmission Date: 20200409
  Serious: No
  Sender: FDA-Public Use
  Company Number: US-PFIZER INC-2019502154

PATIENT
  Age: 75 Year
  Sex: Male
  Weight: 84.37 kg

DRUGS (4)
  1. TIKOSYN [Suspect]
     Active Substance: DOFETILIDE
     Dosage: UNK
  2. TIKOSYN [Suspect]
     Active Substance: DOFETILIDE
     Dosage: UNK
  3. TIKOSYN [Suspect]
     Active Substance: DOFETILIDE
     Dosage: UNK
  4. TIKOSYN [Suspect]
     Active Substance: DOFETILIDE
     Dosage: 500 UG, 2X/DAY
     Route: 048

REACTIONS (2)
  - Dyspnoea [Unknown]
  - Product prescribing error [Unknown]
